FAERS Safety Report 12921571 (Version 1)
Quarter: 2016Q4

REPORT INFORMATION
  Report Type: Report from Study
  Country: US (occurrence: US)
  Receive Date: 20161108
  Receipt Date: 20161108
  Transmission Date: 20170207
  Serious: Yes (Hospitalization, Other)
  Sender: FDA-Public Use
  Company Number: US-BRISTOL-MYERS SQUIBB COMPANY-BMS-2016-086898

PATIENT
  Sex: Male

DRUGS (1)
  1. NIVOLUMAB [Suspect]
     Active Substance: NIVOLUMAB
     Indication: RENAL CANCER
     Route: 042

REACTIONS (9)
  - Oedema [Unknown]
  - Peripheral swelling [Unknown]
  - Dehydration [Unknown]
  - Fall [Unknown]
  - Back pain [Unknown]
  - Insomnia [Unknown]
  - Coccydynia [Unknown]
  - Melaena [Unknown]
  - Asthenia [Unknown]
